FAERS Safety Report 10497504 (Version 1)
Quarter: 2014Q4

REPORT INFORMATION
  Report Type: Spontaneous
  Country: US (occurrence: US)
  Receive Date: 20141006
  Receipt Date: 20141006
  Transmission Date: 20150528
  Serious: No
  Sender: FDA-Public Use
  Company Number: US-ASTRAZENECA-2014SE69430

PATIENT
  Age: 79 Year
  Sex: Male
  Weight: 55.6 kg

DRUGS (3)
  1. SYMBICORT [Suspect]
     Active Substance: BUDESONIDE\FORMOTEROL FUMARATE DIHYDRATE
     Indication: LUNG DISORDER
     Dosage: 160/4.5, 2 PUFFS BID
     Route: 055
     Dates: start: 2014
  2. SPIRIVA [Concomitant]
     Active Substance: TIOTROPIUM BROMIDE MONOHYDRATE
     Dosage: NR
  3. SYMBICORT [Suspect]
     Active Substance: BUDESONIDE\FORMOTEROL FUMARATE DIHYDRATE
     Indication: ASTHMA
     Dosage: 160/4.5, 2 PUFFS BID
     Route: 055
     Dates: start: 2014

REACTIONS (5)
  - Feeling hot [Unknown]
  - Drug dose omission [Unknown]
  - Device misuse [Unknown]
  - Drug ineffective [Unknown]
  - Cough [Unknown]

NARRATIVE: CASE EVENT DATE: 2014
